FAERS Safety Report 6162625-5 (Version None)
Quarter: 2009Q2

REPORT INFORMATION
  Report Type: 
  Country: None (occurrence: None)
  Receive Date: 20090417
  Receipt Date: 20090407
  Transmission Date: 20091009
  Serious: Yes (Death, Hospitalization)
  Sender: FDA-Public Use
  Company Number: KR-JNJFOC-20090402270

PATIENT
  Age: 59 Year
  Sex: Female

DRUGS (7)
  1. DECITABINE (DECITABINE) LYOPHILIZED POWDER [Suspect]
     Indication: MYELODYSPLASTIC SYNDROME
     Dosage: 30 MG, IN 5 DAY, INTRAVENOUS
     Route: 042
     Dates: start: 20090206, end: 20090210
  2. LASIX (FUROSEMIDE) UNSPECIFIED [Concomitant]
  3. POTASSIUM CHLORIDE (POTASSIUM CHLORIDE) UNSPECIFIED [Concomitant]
  4. PREPENEM (PRIMAXIN) UNSPECIFIED [Concomitant]
  5. SEVATRIM (BACTRIM) UNSPECIFIED [Concomitant]
  6. VANCOMYCIN HCL (VANCOMYCIN) UNSPECIFIED [Concomitant]
  7. CIPROFLOXACIN (CIPROFLOXACIN) UNSPECIFIED [Concomitant]

REACTIONS (4)
  - CONDITION AGGRAVATED [None]
  - CONTINUOUS HAEMODIAFILTRATION [None]
  - PNEUMONIA BACTERIAL [None]
  - RENAL FAILURE ACUTE [None]
